FAERS Safety Report 8375534 (Version 2)
Quarter: 2013Q1

REPORT INFORMATION
  Report Type: Report from Study
  Country: US (occurrence: US)
  Receive Date: 20120129
  Receipt Date: 20130129
  Transmission Date: 20140127
  Serious: No
  Sender: FDA-Public Use
  Company Number: US-ABBOTT-11P-163-0883712-00

PATIENT
  Sex: Female

DRUGS (2)
  1. HUMIRA 40 MG/0.8 ML PEN [Suspect]
     Indication: CROHN^S DISEASE
     Dosage: 160MG DAY 1, 80MG DAY 15 AS DIRECTED
     Route: 050
     Dates: start: 201111
  2. PREDNISONE [Suspect]
     Indication: PRODUCT USED FOR UNKNOWN INDICATION
     Dates: start: 201108, end: 20120102

REACTIONS (10)
  - Arthropathy [Recovering/Resolving]
  - Injection site pain [Not Recovered/Not Resolved]
  - Injection site pain [Not Recovered/Not Resolved]
  - Back pain [Unknown]
  - Dry eye [Unknown]
  - Eye oedema [Unknown]
  - Oedema peripheral [Recovering/Resolving]
  - Muscle spasms [None]
  - Visual acuity reduced [Not Recovered/Not Resolved]
  - Blood potassium decreased [Recovering/Resolving]
